FAERS Safety Report 8079419-6 (Version None)
Quarter: 2012Q1

REPORT INFORMATION
  Report Type: 
  Country: None (occurrence: None)
  Receive Date: 20120128
  Receipt Date: 20110823
  Transmission Date: 20120608
  Serious: No
  Sender: FDA-Public Use
  Company Number: US-ABBOTT-11P-163-0848749-00

PATIENT
  Sex: Female

DRUGS (15)
  1. LOVAZA [Concomitant]
     Indication: PRODUCT USED FOR UNKNOWN INDICATION
  2. QVAR 40 [Concomitant]
     Indication: ASTHMA
  3. TOPAMAX [Concomitant]
     Indication: MIGRAINE
  4. NOVOLOG [Concomitant]
     Indication: DIABETES MELLITUS
     Dosage: 10 - 15 UNITS AFTER MEALS
  5. RESCUE INHALER [Concomitant]
     Indication: ASTHMA
  6. HUMIRA [Suspect]
     Indication: COLITIS ULCERATIVE
     Dosage: INITIAL DOSE
     Dates: start: 20110823
  7. ASPIRIN [Concomitant]
     Indication: PRODUCT USED FOR UNKNOWN INDICATION
  8. LISINOPRIL [Concomitant]
     Indication: HYPERTENSION
  9. MULTI-VITAMIN [Concomitant]
     Indication: PRODUCT USED FOR UNKNOWN INDICATION
     Dosage: OCCASIONALLY
  10. KLONOPIN [Concomitant]
     Indication: MIGRAINE
  11. REGLAN [Concomitant]
     Indication: MIGRAINE
  12. LANTUS [Concomitant]
     Indication: DIABETES MELLITUS
     Dosage: IN EVENING
  13. METFFORMIN HYDROCHLORIDE [Concomitant]
     Indication: DIABETES MELLITUS
     Dosage: 1 - 2 TABLETS BID
  14. NEBULIZER [Concomitant]
     Indication: ASTHMA
  15. PRILOSEC [Concomitant]
     Indication: GASTROOESOPHAGEAL REFLUX DISEASE

REACTIONS (5)
  - DRUG LABEL CONFUSION [None]
  - PAIN IN EXTREMITY [None]
  - WRONG TECHNIQUE IN DRUG USAGE PROCESS [None]
  - INCORRECT DOSE ADMINISTERED [None]
  - INCORRECT ROUTE OF DRUG ADMINISTRATION [None]
